FAERS Safety Report 21964281 (Version 1)
Quarter: 2023Q1

REPORT INFORMATION
  Report Type: Spontaneous
  Country: JP (occurrence: JP)
  Receive Date: 20230207
  Receipt Date: 20230207
  Transmission Date: 20230418
  Serious: Yes (Other)
  Sender: FDA-Public Use
  Company Number: JP-TEVA-2023-JP-2852667

PATIENT
  Age: 79 Year
  Sex: Male

DRUGS (3)
  1. CARBOPLATIN [Suspect]
     Active Substance: CARBOPLATIN
     Indication: Lung adenocarcinoma stage IV
     Dosage: AFTER 3 CYCLES OF CARBOPLATIN, HIS ADENOCARCINOMA PROGRESSED
     Route: 065
  2. PEMETREXED [Suspect]
     Active Substance: PEMETREXED
     Indication: Lung adenocarcinoma stage IV
     Dosage: AFTER 3 CYCLES OF PEMETREXED, HIS ADENOCARCINOMA PROGRESSED
     Route: 065
  3. NIVOLUMAB [Suspect]
     Active Substance: NIVOLUMAB
     Indication: Lung adenocarcinoma stage IV
     Dosage: 5 CYCLES
     Route: 065

REACTIONS (3)
  - Tuberculosis [Unknown]
  - Drug ineffective [Unknown]
  - Rash [Recovered/Resolved]
